FAERS Safety Report 10252660 (Version 1)
Quarter: 2014Q2

REPORT INFORMATION
  Report Type: Spontaneous
  Country: US (occurrence: None)
  Receive Date: 20140620
  Receipt Date: 20140620
  Transmission Date: 20141212
  Serious: Yes (Other)
  Sender: FDA-Public Use
  Company Number: None

PATIENT
  Sex: Male

DRUGS (1)
  1. FELBATOL [Suspect]
     Indication: EPILEPSY
     Route: 048
     Dates: start: 2007

REACTIONS (3)
  - Muscle twitching [None]
  - Dyskinesia [None]
  - Depressed level of consciousness [None]
